FAERS Safety Report 4479826-4 (Version None)
Quarter: 2004Q3

REPORT INFORMATION
  Report Type: 
  Country: None (occurrence: None)
  Receive Date: 20040923
  Receipt Date: 20040628
  Transmission Date: 20050211
  Serious: No
  Sender: FDA-Public Use
  Company Number: USA040568348

PATIENT
  Age: 61 Year
  Sex: Female
  Weight: 98 kg

DRUGS (7)
  1. FORTEO [Suspect]
     Indication: OSTEOPOROSIS
     Dosage: 20 UG/1 DAY
     Dates: start: 20040521
  2. LASIX [Concomitant]
  3. HYDROCHLOROTHIAZIDE [Concomitant]
  4. VITAMIN D [Concomitant]
  5. DEPAKOTE [Concomitant]
  6. POTASSIUM [Concomitant]
  7. MYSOLINE [Concomitant]

REACTIONS (3)
  - ARTHRITIS [None]
  - MUSCLE CRAMP [None]
  - OEDEMA PERIPHERAL [None]
